FAERS Safety Report 9822098 (Version 1)
Quarter: 2014Q1

REPORT INFORMATION
  Report Type: Report from Study
  Country: CA (occurrence: CA)
  Receive Date: 20140116
  Receipt Date: 20140116
  Transmission Date: 20141002
  Serious: Yes (Disabling)
  Sender: FDA-Public Use
  Company Number: PHHY2014CA004207

PATIENT
  Sex: Female

DRUGS (5)
  1. CLOZARIL [Suspect]
     Indication: PSYCHOTIC DISORDER
     Dosage: 200 MG, AT BEDTIME
     Route: 048
     Dates: start: 20130912, end: 20131225
  2. PROPANOLOL [Concomitant]
     Dosage: UNK UKN, UNK
  3. CIPRALEX                                /DEN/ [Concomitant]
     Dosage: UNK UKN, UNK
  4. SEROQUEL [Concomitant]
     Dosage: UNK UKN, UNK
  5. LITHIUM [Concomitant]
     Dosage: UNK UKN, UNK

REACTIONS (2)
  - Incontinence [Unknown]
  - Dyskinesia [Unknown]
